FAERS Safety Report 8520742 (Version 3)
Quarter: 2012Q4

REPORT INFORMATION
  Report Type: 
  Country: CL (occurrence: CL)
  Receive Date: 20120418
  Receipt Date: 20121211
  Transmission Date: 20130627
  Serious: Yes (Death, Hospitalization)
  Sender: FDA-Public Use
  Company Number: CL-AMGEN-CHLSP2012023709

PATIENT
  Age: 53 Year
  Sex: Female

DRUGS (3)
  1. NEUPOGEN [Suspect]
     Indication: FEBRILE NEUTROPENIA
     Dosage: UNK
     Route: 065
  2. DAUNORUBICIN HYDROCHLORIDE [Concomitant]
     Indication: ACUTE MYELOID LEUKAEMIA
     Dosage: UNK
     Route: 065
  3. CYTARABIN [Concomitant]
     Indication: ACUTE MYELOID LEUKAEMIA
     Dosage: UNK
     Route: 065

REACTIONS (5)
  - Cardiopulmonary failure [Fatal]
  - Pyrexia [Unknown]
  - Headache [Unknown]
  - Conjunctivitis [Unknown]
  - Acute febrile neutrophilic dermatosis [Recovering/Resolving]
